FAERS Safety Report 8353193-8 (Version None)
Quarter: 2012Q2

REPORT INFORMATION
  Report Type: 
  Country: None (occurrence: None)
  Receive Date: 20120509
  Receipt Date: 20120428
  Transmission Date: 20120825
  Serious: Yes (Death, Other)
  Sender: FDA-Public Use
  Company Number: 201205000011

PATIENT
  Age: 3 Week
  Sex: Female

DRUGS (11)
  1. HYDROCORTIONE (HYDROCORTISONE) [Concomitant]
  2. CAFFEINE CITRATE [Concomitant]
  3. OXYGEN (OXYGEN) [Concomitant]
  4. INOMAX [Suspect]
     Indication: OXYGEN SATURATION DECREASED
     Dosage: 20 PPM, CONTINUOUS, INHALATION
     Route: 055
     Dates: start: 20120427, end: 20120428
  5. CLINDAMYCIN [Concomitant]
  6. DOBUTAMINE (DOBUTAMINE) [Concomitant]
  7. VANCOMYCI (VANCOMYCIN) [Concomitant]
  8. DOPAMINE HCL [Concomitant]
  9. DOXAPRAM (DOXAPRAM) [Concomitant]
  10. ALBUMIN (HUMAN) [Concomitant]
  11. GENTAMICIN [Concomitant]

REACTIONS (4)
  - BLOOD PH DECREASED [None]
  - CARDIO-RESPIRATORY ARREST [None]
  - OXYGEN SATURATION DECREASED [None]
  - OFF LABEL USE [None]
